FAERS Safety Report 4585115-X (Version None)
Quarter: 2005Q1

REPORT INFORMATION
  Report Type: 
  Country: None (occurrence: None)
  Receive Date: 20050217
  Receipt Date: 20041230
  Transmission Date: 20050727
  Serious: No
  Sender: FDA-Public Use
  Company Number: US-GLAXOSMITHKLINE-A0539270A

PATIENT
  Sex: Male

DRUGS (1)
  1. WELLBUTRIN XL [Suspect]
     Indication: TOBACCO ABUSE
     Route: 048
     Dates: start: 20040101

REACTIONS (3)
  - DEPRESSED MOOD [None]
  - FATIGUE [None]
  - SOMNOLENCE [None]
